FAERS Safety Report 9032996 (Version 5)
Quarter: 2013Q1

REPORT INFORMATION
  Report Type: Spontaneous
  Country: GB (occurrence: None)
  Receive Date: 20130110
  Receipt Date: 20130226
  Transmission Date: 20140127
  Serious: Yes (Hospitalization)
  Sender: FDA-Public Use
  Company Number: 1546208

PATIENT
  Age: 11 Year
  Sex: Female
  Weight: 41.5 kg

DRUGS (9)
  1. VINCRISTINE SULFATE [Suspect]
     Indication: NEOPLASM MALIGNANT
     Route: 042
     Dates: start: 20120809
  2. ACTINOMYCIN D [Suspect]
     Indication: NEOPLASM MALIGNANT
     Route: 042
     Dates: start: 20120809
  3. DOXORUBICIN [Suspect]
     Indication: NEOPLASM MALIGNANT
     Dosage: (NOT OTHERWISE SPECIFIED)
     Route: 042
     Dates: start: 20120810
  4. IFOSFAMIDE [Suspect]
     Indication: NEOPLASM MALIGNANT
     Route: 042
     Dates: start: 20120809
  5. LACTULOSE [Concomitant]
  6. LISINOPRIL [Concomitant]
  7. MAGNESIUM GLYCEROPHOSPHATE [Concomitant]
  8. MELATONIN [Concomitant]
  9. CO-TRIMOXAZOLE [Concomitant]

REACTIONS (4)
  - Febrile neutropenia [None]
  - Platelet count decreased [None]
  - White blood cell count decreased [None]
  - Haemoglobin decreased [None]
